FAERS Safety Report 4710590-7 (Version None)
Quarter: 2005Q3

REPORT INFORMATION
  Report Type: 
  Country: None (occurrence: None)
  Receive Date: 20050707
  Receipt Date: 20050616
  Transmission Date: 20060218
  Serious: Yes (Hospitalization, Disabling)
  Sender: FDA-Public Use
  Company Number: AU_050408500

PATIENT
  Age: 71 Year
  Sex: Female

DRUGS (4)
  1. FORTEO [Suspect]
     Indication: OSTEOPOROSIS
     Dosage: 20 UG/ONCE DAY
     Dates: start: 20050201, end: 20050501
  2. CORTISONE [Concomitant]
  3. LIPITOR [Concomitant]
  4. KARVEZIDE [Concomitant]

REACTIONS (2)
  - BONE PAIN [None]
  - GASTRIC DISORDER [None]
